FAERS Safety Report 5580106-4 (Version None)
Quarter: 2007Q4

REPORT INFORMATION
  Report Type: 
  Country: None (occurrence: None)
  Receive Date: 20071227
  Receipt Date: 20071227
  Transmission Date: 20080405
  Serious: Yes (Other)
  Sender: FDA-Public Use
  Company Number: None

PATIENT
  Sex: Female

DRUGS (1)
  1. CARVEDILOL [Suspect]

REACTIONS (4)
  - BRADYCARDIA [None]
  - CARDIO-RESPIRATORY ARREST [None]
  - HYPOTENSION [None]
  - MENTAL STATUS CHANGES [None]
